FAERS Safety Report 6135581-3 (Version None)
Quarter: 2009Q1

REPORT INFORMATION
  Report Type: 
  Country: None (occurrence: None)
  Receive Date: 20090327
  Receipt Date: 20090325
  Transmission Date: 20090719
  Serious: Yes (Death)
  Sender: FDA-Public Use
  Company Number: PHHY2009US11006

PATIENT

DRUGS (2)
  1. GLEEVEC [Suspect]
     Indication: CHRONIC MYELOID LEUKAEMIA
     Dosage: 400 MG, QD
     Route: 048
     Dates: start: 20081025
  2. GLEEVEC [Suspect]
     Indication: NAUSEA

REACTIONS (2)
  - DISEASE PROGRESSION [None]
  - NAUSEA [None]
